FAERS Safety Report 26177927 (Version 1)
Quarter: 2025Q4

REPORT INFORMATION
  Report Type: Spontaneous
  Country: EU (occurrence: EU)
  Receive Date: 20251219
  Receipt Date: 20251219
  Transmission Date: 20260117
  Serious: Yes (Other)
  Sender: AUROBINDO
  Company Number: EU-LRB-01102303

PATIENT
  Age: 20 Year
  Sex: Female

DRUGS (3)
  1. LORAZEPAM [Suspect]
     Active Substance: LORAZEPAM
     Indication: Insomnia
     Dosage: 1 DOSAGE FORM, TWO TIMES A DAY
     Route: 061
     Dates: start: 20251106, end: 20251122
  2. LORAZEPAM [Suspect]
     Active Substance: LORAZEPAM
     Indication: Post-traumatic stress disorder
  3. DEXAMFETAMINE TABLET 20MG / Brand name not specified [Concomitant]
     Indication: Product used for unknown indication
     Route: 065

REACTIONS (3)
  - Suicidal ideation [Recovered/Resolved]
  - Psychotic symptom [Recovered/Resolved]
  - Intentional self-injury [Recovered/Resolved]
